FAERS Safety Report 4597881-8 (Version None)
Quarter: 2005Q1

REPORT INFORMATION
  Report Type: 
  Country: None (occurrence: None)
  Receive Date: 20050125
  Receipt Date: 20040902
  Transmission Date: 20050727
  Serious: No
  Sender: FDA-Public Use
  Company Number: USA040876218

PATIENT
  Age: 80 Year
  Sex: Female
  Weight: 89 kg

DRUGS (11)
  1. FORTEO [Suspect]
     Indication: OSTEOPOROSIS
     Dosage: 20 UG/1 DAY
     Dates: start: 20030801
  2. STARLIX [Concomitant]
  3. LASIX                        /USA/(FUROSEMIDE) [Concomitant]
  4. DIOVAN              /SCH/(VALSARTAN) [Concomitant]
  5. LOPRESSOR [Concomitant]
  6. PLAVIX [Concomitant]
  7. PREMARIN [Concomitant]
  8. NORVASC [Concomitant]
  9. ZOCOR [Concomitant]
  10. POTASSIUM CHLORIDE [Concomitant]
  11. CALCIUM GLUCONATE [Concomitant]

REACTIONS (6)
  - ASTHENIA [None]
  - DIZZINESS [None]
  - FALL [None]
  - FATIGUE [None]
  - HEART RATE DECREASED [None]
  - MUSCLE SPASMS [None]
